FAERS Safety Report 9247299 (Version 1)
Quarter: 2013Q2

REPORT INFORMATION
  Report Type: Spontaneous
  Country: IT (occurrence: IT)
  Receive Date: 20130423
  Receipt Date: 20130423
  Transmission Date: 20140414
  Serious: Yes (Other)
  Sender: FDA-Public Use
  Company Number: IT-AMGEN-ITASP2013026303

PATIENT
  Age: 64 Year
  Sex: Male

DRUGS (2)
  1. ENBREL [Suspect]
     Indication: RHEUMATOID ARTHRITIS
     Dosage: UNK
     Route: 065
     Dates: start: 2008, end: 2011
  2. ENBREL [Suspect]
     Indication: PSORIASIS

REACTIONS (4)
  - Papillary thyroid cancer [Not Recovered/Not Resolved]
  - Quality of life decreased [Unknown]
  - Drug ineffective [Unknown]
  - Pulmonary tuberculosis [Not Recovered/Not Resolved]
